FAERS Safety Report 19586937 (Version 1)
Quarter: 2021Q3

REPORT INFORMATION
  Report Type: Spontaneous
  Country: US (occurrence: US)
  Receive Date: 20210721
  Receipt Date: 20210721
  Transmission Date: 20211014
  Serious: No
  Sender: FDA-Public Use
  Company Number: US-TEVA-2021-US-1933224

PATIENT
  Age: 82 Year
  Sex: Female

DRUGS (1)
  1. CYCLOSPORINE MODIFIED [Suspect]
     Active Substance: CYCLOSPORINE
     Dosage: FOR FIVE YEARS
     Route: 048

REACTIONS (2)
  - Hepatic enzyme abnormal [Recovered/Resolved]
  - Liver disorder [Unknown]
